FAERS Safety Report 14247540 (Version 2)
Quarter: 2018Q3

REPORT INFORMATION
  Report Type: Spontaneous
  Country: AT (occurrence: AT)
  Receive Date: 20171204
  Receipt Date: 20180702
  Transmission Date: 20181010
  Serious: Yes (Hospitalization)
  Sender: FDA-Public Use
  Company Number: AT-009507513-1711AUT010769

PATIENT
  Age: 51 Year
  Sex: Female

DRUGS (4)
  1. CEPHALORIDINE [Suspect]
     Active Substance: CEPHALORIDINE
     Indication: URINARY TRACT INFECTION
     Dosage: 4 G, QD
     Route: 065
     Dates: start: 1973, end: 1973
  2. THERAPY UNSPECIFIED [Suspect]
     Active Substance: UNSPECIFIED INGREDIENT
  3. FUROSEMIDE. [Suspect]
     Active Substance: FUROSEMIDE
     Dosage: UNK
     Route: 065
     Dates: start: 1973
  4. GENTAMICIN. [Suspect]
     Active Substance: GENTAMICIN
     Indication: URINARY TRACT INFECTION
     Dosage: 80 MG, QD
     Route: 065
     Dates: start: 1973, end: 1973

REACTIONS (7)
  - Oliguria [Recovering/Resolving]
  - Blood creatinine increased [Recovering/Resolving]
  - Pleural effusion [Unknown]
  - Renal impairment [Recovered/Resolved]
  - Acute kidney injury [Recovering/Resolving]
  - Anuria [Recovering/Resolving]
  - Drug ineffective [Unknown]

NARRATIVE: CASE EVENT DATE: 197305
